FAERS Safety Report 17629562 (Version 6)
Quarter: 2024Q4

REPORT INFORMATION
  Report Type: Spontaneous
  Country: US (occurrence: US)
  Receive Date: 20200406
  Receipt Date: 20241125
  Transmission Date: 20250114
  Serious: No
  Sender: PFIZER
  Company Number: US-PFIZER INC-2019346016

PATIENT
  Age: 76 Year
  Sex: Male
  Weight: 83.9 kg

DRUGS (5)
  1. BOSULIF [Suspect]
     Active Substance: BOSUTINIB MONOHYDRATE
     Indication: Chronic myeloid leukaemia
     Dosage: 200 MG, DAILY (100 MG, 2 TABLETS PO DAILY)
     Route: 048
     Dates: start: 2019
  2. BOSULIF [Suspect]
     Active Substance: BOSUTINIB MONOHYDRATE
     Dosage: 100 MG, 3X/DAY
     Route: 048
  3. BOSULIF [Suspect]
     Active Substance: BOSUTINIB MONOHYDRATE
     Dosage: 400 MG, DAILY, (TAKE 1 TABLET (400 MG) BY MOUTH DAILY)
     Route: 048
  4. BOSULIF [Suspect]
     Active Substance: BOSUTINIB MONOHYDRATE
     Dosage: 400 MG, DAILY (TAKE 4 TABLETS DAILY)
     Route: 048
  5. BOSULIF [Suspect]
     Active Substance: BOSUTINIB MONOHYDRATE
     Dosage: 4 TAB QD
     Route: 048

REACTIONS (2)
  - Weight decreased [Unknown]
  - Off label use [Unknown]
